FAERS Safety Report 14187084 (Version 1)
Quarter: 2017Q4

REPORT INFORMATION
  Report Type: Spontaneous
  Country: US (occurrence: US)
  Receive Date: 20171114
  Receipt Date: 20171114
  Transmission Date: 20180321
  Serious: No
  Sender: FDA-Public Use
  Company Number: US-PFIZER INC-2017485927

PATIENT
  Sex: Female

DRUGS (2)
  1. NICOTROL [Suspect]
     Active Substance: NICOTINE
     Indication: SMOKING CESSATION THERAPY
     Dosage: UNK
  2. NICOTROL [Suspect]
     Active Substance: NICOTINE
     Dosage: UNK
     Dates: start: 20171108

REACTIONS (4)
  - Nervousness [Unknown]
  - Expired product administered [Unknown]
  - Insomnia [Unknown]
  - Dysarthria [Unknown]

NARRATIVE: CASE EVENT DATE: 20171108
